FAERS Safety Report 8861398 (Version 1)
Quarter: 2012Q4

REPORT INFORMATION
  Report Type: Spontaneous
  Country: US (occurrence: None)
  Receive Date: 20121022
  Receipt Date: 20121022
  Transmission Date: 20130627
  Serious: Yes (Other)
  Sender: FDA-Public Use
  Company Number: FK201203079

PATIENT
  Sex: Male

DRUGS (1)
  1. HYDRALAZINE HCL [Suspect]
     Indication: HYPERTENSION

REACTIONS (4)
  - Hyperhidrosis [None]
  - Blood pressure decreased [None]
  - Dizziness [None]
  - Nausea [None]
